FAERS Safety Report 16366515 (Version 1)
Quarter: 2019Q2

REPORT INFORMATION
  Report Type: Spontaneous
  Country: US (occurrence: US)
  Receive Date: 20190422
  Receipt Date: 20190422
  Transmission Date: 20190711
  Serious: Yes (Hospitalization)
  Sender: FDA-Public Use
  Company Number: None

PATIENT
  Age: 74 Year
  Sex: Male
  Weight: 105 kg

DRUGS (2)
  1. DABIGATRAN [Suspect]
     Active Substance: DABIGATRAN
     Indication: ATRIAL FIBRILLATION
     Route: 048
     Dates: start: 20190301, end: 20190324
  2. DABIGATRAN [Suspect]
     Active Substance: DABIGATRAN
     Indication: PULMONARY EMBOLISM

REACTIONS (1)
  - Haemoptysis [None]

NARRATIVE: CASE EVENT DATE: 20190325
